FAERS Safety Report 5274378-3 (Version None)
Quarter: 2007Q1

REPORT INFORMATION
  Report Type: 
  Country: None (occurrence: None)
  Receive Date: 20070323
  Receipt Date: 20070313
  Transmission Date: 20070707
  Serious: Yes (Death, Hospitalization)
  Sender: FDA-Public Use
  Company Number: JP-PFIZER INC-2006141311

PATIENT
  Sex: Female

DRUGS (6)
  1. UNASYN [Suspect]
     Indication: PNEUMONIA ASPIRATION
     Route: 042
     Dates: start: 20061028, end: 20061030
  2. GASTER [Concomitant]
     Route: 048
  3. LASIX [Concomitant]
  4. POTASSIUM CANRENOATE [Concomitant]
     Dates: start: 20061021
  5. AMINOTRIPA 1 [Concomitant]
     Dates: start: 20061024
  6. HUMULIN 70/30 [Concomitant]
     Dates: start: 20061027

REACTIONS (3)
  - DEATH [None]
  - HEPATIC FUNCTION ABNORMAL [None]
  - PNEUMONIA [None]
